FAERS Safety Report 15258684 (Version 2)
Quarter: 2018Q3

REPORT INFORMATION
  Report Type: Report from Study
  Country: CA (occurrence: CA)
  Receive Date: 20180809
  Receipt Date: 20180814
  Transmission Date: 20181010
  Serious: Yes (Other)
  Sender: FDA-Public Use
  Company Number: CA-ROCHE-2074998

PATIENT
  Age: 38 Year
  Sex: Female

DRUGS (14)
  1. ZENHALE [Concomitant]
     Active Substance: FORMOTEROL FUMARATE\MOMETASONE FUROATE
     Indication: ASTHMA
  2. ACTEMRA [Suspect]
     Active Substance: TOCILIZUMAB
     Dosage: PERFUSION 68
     Route: 042
     Dates: start: 20180213
  3. PREVACID [Concomitant]
     Active Substance: LANSOPRAZOLE
  4. NASONEX [Concomitant]
     Active Substance: MOMETASONE FUROATE
  5. ACTEMRA [Suspect]
     Active Substance: TOCILIZUMAB
     Dosage: PERFUSION 68
     Route: 042
     Dates: start: 20140715
  6. ADVAIR HFA [Concomitant]
     Active Substance: FLUTICASONE PROPIONATE\SALMETEROL XINAFOATE
     Indication: ASTHMA
  7. ACTEMRA [Suspect]
     Active Substance: TOCILIZUMAB
     Indication: RHEUMATOID ARTHRITIS
     Route: 042
     Dates: start: 20120829
  8. DEPO?PROVERA [Concomitant]
     Active Substance: MEDROXYPROGESTERONE ACETATE
  9. ACTEMRA [Suspect]
     Active Substance: TOCILIZUMAB
     Route: 042
     Dates: start: 20140319
  10. MICARDIS [Suspect]
     Active Substance: TELMISARTAN
     Indication: HYPERTENSION
     Route: 065
  11. VOLTAREN [Concomitant]
     Active Substance: DICLOFENAC SODIUM
     Dosage: AS REQUIRED
     Route: 065
  12. CELEBREX [Concomitant]
     Active Substance: CELECOXIB
     Dosage: AS REQUIRED
     Route: 065
  13. VENTOLIN [Concomitant]
     Active Substance: ALBUTEROL SULFATE
  14. ASMANEX [Concomitant]
     Active Substance: MOMETASONE FUROATE
     Indication: ASTHMA

REACTIONS (8)
  - Iron deficiency anaemia [Unknown]
  - Heart rate increased [Unknown]
  - Tinnitus [Unknown]
  - Dizziness [Unknown]
  - Hypertension [Recovered/Resolved]
  - Hypotension [Unknown]
  - Asthenia [Unknown]
  - Headache [Unknown]

NARRATIVE: CASE EVENT DATE: 2018
